FAERS Safety Report 4589404-4 (Version None)
Quarter: 2005Q1

REPORT INFORMATION
  Report Type: 
  Country: None (occurrence: None)
  Receive Date: 20050216
  Receipt Date: 20050208
  Transmission Date: 20050727
  Serious: Yes (Other)
  Sender: FDA-Public Use
  Company Number: 200414470BCC

PATIENT
  Age: 29 Year
  Sex: Female
  Weight: 59.4212 kg

DRUGS (3)
  1. ALEVE [Suspect]
     Indication: PAIN
     Dosage: 220 MG, PRN, ORAL
     Route: 048
     Dates: start: 20040820, end: 20040914
  2. ALEVE [Suspect]
     Indication: TOOTHACHE
     Dosage: 220 MG, PRN, ORAL
     Route: 048
     Dates: start: 20040820, end: 20040914
  3. PRENATAL VITAMINS [Concomitant]

REACTIONS (6)
  - ANTEPARTUM HAEMORRHAGE [None]
  - DRUG EXPOSURE DURING PREGNANCY [None]
  - FLUID RETENTION [None]
  - PLACENTAL DISORDER [None]
  - TREATMENT NONCOMPLIANCE [None]
  - UMBILICAL CORD ABNORMALITY [None]
